FAERS Safety Report 9614286 (Version 1)
Quarter: 2013Q4

REPORT INFORMATION
  Report Type: Spontaneous
  Country: US (occurrence: US)
  Receive Date: 20131011
  Receipt Date: 20131011
  Transmission Date: 20140711
  Serious: No
  Sender: FDA-Public Use
  Company Number: US-BAYER-2013-111994

PATIENT
  Sex: Female

DRUGS (1)
  1. BETAPACE AF [Suspect]

REACTIONS (1)
  - Blood pressure increased [None]
